FAERS Safety Report 9219450 (Version 1)
Quarter: 2013Q2

REPORT INFORMATION
  Report Type: Spontaneous
  Country: US (occurrence: US)
  Receive Date: 20130409
  Receipt Date: 20130409
  Transmission Date: 20140414
  Serious: No
  Sender: FDA-Public Use
  Company Number: US-PFIZER INC-2013109486

PATIENT
  Age: 76 Year
  Sex: Female
  Weight: 65.8 kg

DRUGS (1)
  1. LEVOXYL [Suspect]
     Dosage: UNK
     Dates: start: 2009

REACTIONS (1)
  - Nausea [Unknown]
